FAERS Safety Report 13949685 (Version 1)
Quarter: 2017Q3

REPORT INFORMATION
  Report Type: Spontaneous
  Country: US (occurrence: US)
  Receive Date: 20170908
  Receipt Date: 20170908
  Transmission Date: 20171128
  Serious: Yes (Other)
  Sender: FDA-Public Use
  Company Number: US-ROCHE-1136057

PATIENT
  Age: 74 Year
  Sex: Female

DRUGS (6)
  1. HERCEPTIN [Concomitant]
     Active Substance: TRASTUZUMAB
  2. CALCIUM [Concomitant]
     Active Substance: CALCIUM
     Route: 065
  3. FLUDARABINE [Concomitant]
     Active Substance: FLUDARABINE PHOSPHATE
  4. RITUXAN [Suspect]
     Active Substance: RITUXIMAB
     Indication: NON-HODGKIN^S LYMPHOMA
     Route: 065
     Dates: start: 19980608, end: 19980701
  5. RITUXAN [Suspect]
     Active Substance: RITUXIMAB
     Route: 065
     Dates: start: 19981117, end: 19981208
  6. PREMARIN [Concomitant]
     Active Substance: ESTROGENS, CONJUGATED
     Route: 065

REACTIONS (12)
  - Wheezing [Recovering/Resolving]
  - Thrombocytopenia [Recovered/Resolved]
  - Pain [Unknown]
  - Hypogammaglobulinaemia [Unknown]
  - Cough [Recovering/Resolving]
  - Weight decreased [Unknown]
  - Dyspnoea [Unknown]
  - Fatigue [Unknown]
  - Chest discomfort [Unknown]
  - Pneumonia [Unknown]
  - Anaemia [Unknown]
  - Hyperhidrosis [Unknown]
